FAERS Safety Report 18689532 (Version 3)
Quarter: 2021Q1

REPORT INFORMATION
  Report Type: Spontaneous
  Country: IT (occurrence: IT)
  Receive Date: 20201231
  Receipt Date: 20210118
  Transmission Date: 20210419
  Serious: Yes (Hospitalization, Other)
  Sender: FDA-Public Use
  Company Number: IT-JNJFOC-20201242607

PATIENT
  Age: 58 Year
  Sex: Male

DRUGS (14)
  1. NUVIQ [Concomitant]
     Route: 065
     Dates: start: 201709
  2. DOLUTEGRAVIR [Suspect]
     Active Substance: DOLUTEGRAVIR
     Indication: HIV INFECTION
  3. CLOPIDOGREL [Concomitant]
     Active Substance: CLOPIDOGREL BISULFATE
     Indication: ACUTE MYOCARDIAL INFARCTION
     Route: 065
     Dates: start: 201704
  4. SIMOCTOCOG ALFA [Concomitant]
     Indication: ANTICOAGULANT THERAPY
     Route: 065
  5. NUVIQ [Concomitant]
     Indication: FACTOR VIII DEFICIENCY
     Dosage: 3,000 I.U. THREE TIMES A WEEK
     Route: 065
     Dates: start: 201709
  6. DARUNAVIR [Suspect]
     Active Substance: DARUNAVIR
     Indication: HIV INFECTION
     Route: 048
     Dates: start: 2016
  7. DOLUTEGRAVIR [Suspect]
     Active Substance: DOLUTEGRAVIR
     Indication: HEPATITIS C
     Route: 065
     Dates: start: 2016
  8. SIMOCTOCOG ALFA [Concomitant]
     Dosage: QW3
     Route: 065
  9. OCTOCOG ALFA [Concomitant]
     Active Substance: ANTIHEMOPHILIC FACTOR, HUMAN RECOMBINANT
     Indication: FACTOR VIII DEFICIENCY
     Dosage: QOD
     Route: 065
  10. DARUNAVIR [Suspect]
     Active Substance: DARUNAVIR
     Indication: HEPATITIS C
  11. ACETYLSALICYLIC ACID [Concomitant]
     Active Substance: ASPIRIN
     Indication: ACUTE MYOCARDIAL INFARCTION
     Route: 065
     Dates: start: 201704
  12. ACETYLSALICYLIC ACID [Concomitant]
     Active Substance: ASPIRIN
     Indication: ANTIPLATELET THERAPY
  13. CLOPIDOGREL [Concomitant]
     Active Substance: CLOPIDOGREL BISULFATE
     Indication: ANTIPLATELET THERAPY
  14. SIMOCTOCOG ALFA [Concomitant]
     Indication: FACTOR VIII DEFICIENCY
     Dosage: QOD
     Route: 065
     Dates: start: 201709

REACTIONS (1)
  - Rhabdomyolysis [Unknown]

NARRATIVE: CASE EVENT DATE: 202004
